FAERS Safety Report 9880806 (Version 1)
Quarter: 2014Q1

REPORT INFORMATION
  Report Type: Spontaneous
  Country: US (occurrence: None)
  Receive Date: 20140206
  Receipt Date: 20140206
  Transmission Date: 20141002
  Serious: Yes (Life-Threatening)
  Sender: FDA-Public Use
  Company Number: None

PATIENT
  Age: 56 Year
  Sex: Male
  Weight: 101 kg

DRUGS (1)
  1. XARELTO [Suspect]
     Indication: ATRIAL FIBRILLATION

REACTIONS (5)
  - Subdural haemorrhage [None]
  - Intraventricular haemorrhage [None]
  - Haemorrhage intracranial [None]
  - Ruptured cerebral aneurysm [None]
  - Head injury [None]
